FAERS Safety Report 6557461-1 (Version None)
Quarter: 2010Q1

REPORT INFORMATION
  Report Type: 
  Country: None (occurrence: None)
  Receive Date: 20100129
  Receipt Date: 20090928
  Transmission Date: 20100710
  Serious: Yes (Hospitalization)
  Sender: FDA-Public Use
  Company Number: NL-ASTRAZENECA-2009SE16142

PATIENT
  Age: 63 Year
  Sex: Female
  Weight: 85 kg

DRUGS (2)
  1. NEXIUM [Suspect]
     Indication: DYSPEPSIA
     Route: 048
     Dates: start: 20090702, end: 20090720
  2. PLAVIX [Interacting]
     Indication: DYSPEPSIA
     Route: 048

REACTIONS (2)
  - DEVICE OCCLUSION [None]
  - DRUG INTERACTION [None]
